FAERS Safety Report 5838253-5 (Version None)
Quarter: 2008Q3

REPORT INFORMATION
  Report Type: 
  Country: None (occurrence: None)
  Receive Date: 20080808
  Receipt Date: 20080730
  Transmission Date: 20090109
  Serious: Yes (Death)
  Sender: FDA-Public Use
  Company Number: DE-AVENTIS-200812049DE

PATIENT
  Age: 68 Year
  Sex: Male

DRUGS (4)
  1. TAXOTERE [Suspect]
     Route: 041
     Dates: start: 20080716, end: 20080716
  2. FLUOROURACIL [Suspect]
     Route: 041
     Dates: start: 20080716, end: 20080716
  3. FOLINSAEURE [Suspect]
     Route: 041
     Dates: start: 20080716, end: 20080716
  4. OXALIPLATIN [Suspect]
     Route: 041
     Dates: start: 20080716, end: 20080716

REACTIONS (1)
  - MYOCARDIAL INFARCTION [None]
